FAERS Safety Report 14167074 (Version 3)
Quarter: 2018Q2

REPORT INFORMATION
  Report Type: Not Available
  Country: US (occurrence: US)
  Receive Date: 20171107
  Receipt Date: 20180510
  Transmission Date: 20180711
  Serious: Yes (Other)
  Sender: FDA-Public Use
  Company Number: US-NEUROCRINE BIOSCIENCES INC.-2017NBI01330

PATIENT
  Age: 58 Year
  Sex: Female

DRUGS (4)
  1. METOPROLOL TARTRATE. [Concomitant]
     Active Substance: METOPROLOL TARTRATE
     Indication: HYPERTENSION
     Route: 048
  2. INGREZZA [Suspect]
     Active Substance: VALBENAZINE
     Indication: TARDIVE DYSKINESIA
     Route: 048
     Dates: start: 20171016, end: 20171019
  3. VRAYLAR [Concomitant]
     Active Substance: CARIPRAZINE
     Indication: BIPOLAR I DISORDER
     Route: 048
  4. VRAYLAR [Concomitant]
     Active Substance: CARIPRAZINE
     Indication: DEPRESSION

REACTIONS (4)
  - Suicidal ideation [Recovered/Resolved]
  - Depression [Recovered/Resolved]
  - Agitation [Recovered/Resolved]
  - Mood swings [Recovered/Resolved]

NARRATIVE: CASE EVENT DATE: 20171017
